FAERS Safety Report 8326627-2 (Version None)
Quarter: 2012Q2

REPORT INFORMATION
  Report Type: 
  Country: None (occurrence: None)
  Receive Date: 20120501
  Receipt Date: 20090908
  Transmission Date: 20120825
  Serious: No
  Sender: FDA-Public Use
  Company Number: US-TEVA-2009010195

PATIENT
  Sex: Female

DRUGS (4)
  1. FLUOXETINE [Concomitant]
     Indication: DEPRESSION
     Route: 048
     Dates: start: 20090101
  2. TRAZODONE HCL [Concomitant]
     Indication: PANIC DISORDER
     Route: 048
     Dates: start: 20000101
  3. NUVIGIL [Suspect]
     Indication: SLEEP APNOEA SYNDROME
     Dosage: 150 MILLIGRAM;
     Route: 048
     Dates: start: 20090903, end: 20090903
  4. THYROID TAB [Concomitant]
     Indication: THYROIDECTOMY
     Route: 048
     Dates: start: 20090701

REACTIONS (1)
  - INITIAL INSOMNIA [None]
